FAERS Safety Report 25601541 (Version 1)
Quarter: 2025Q3

REPORT INFORMATION
  Report Type: Spontaneous
  Country: US (occurrence: None)
  Receive Date: 20250723
  Receipt Date: 20250723
  Transmission Date: 20251020
  Serious: Yes (Life-Threatening)
  Sender: FDA-CTU
  Company Number: None

PATIENT
  Age: 14 Year
  Sex: Female
  Weight: 77.4 kg

DRUGS (2)
  1. ASPARLAS [Suspect]
     Active Substance: CALASPARGASE PEGOL-MKNL
     Indication: B-cell type acute leukaemia
     Route: 042
     Dates: start: 20250625, end: 20250625
  2. PREDNISONE [Concomitant]
     Active Substance: PREDNISONE
     Dates: start: 20250622, end: 20250719

REACTIONS (1)
  - Hyperlipidaemia [None]

NARRATIVE: CASE EVENT DATE: 20250722
